FAERS Safety Report 5596432-9 (Version None)
Quarter: 2008Q1

REPORT INFORMATION
  Report Type: 
  Country: None (occurrence: None)
  Receive Date: 20080118
  Receipt Date: 20071107
  Transmission Date: 20080703
  Serious: Yes (Other)
  Sender: FDA-Public Use
  Company Number: US-PFIZER INC-2007094043

PATIENT
  Sex: Male
  Weight: 152.27 kg

DRUGS (7)
  1. LYRICA [Suspect]
     Indication: DIABETIC NEUROPATHY
     Dates: start: 20071106, end: 20071107
  2. IRON [Concomitant]
  3. ASPIRIN [Concomitant]
  4. LISINOPRIL [Concomitant]
  5. BUMEX [Concomitant]
  6. ACTOS [Concomitant]
  7. INDOCIN [Concomitant]

REACTIONS (2)
  - ASTHENIA [None]
  - EMOTIONAL DISORDER [None]
